FAERS Safety Report 22925626 (Version 10)
Quarter: 2024Q1

REPORT INFORMATION
  Report Type: Spontaneous
  Country: JP (occurrence: JP)
  Receive Date: 20230908
  Receipt Date: 20240321
  Transmission Date: 20240410
  Serious: Yes (Hospitalization, Other)
  Sender: FDA-Public Use
  Company Number: JP-MSD-2308JPN002971J

PATIENT
  Age: 79 Year
  Sex: Female
  Weight: 40 kg

DRUGS (4)
  1. KEYTRUDA [Suspect]
     Active Substance: PEMBROLIZUMAB
     Indication: Renal cell carcinoma stage IV
     Dosage: UNK
     Route: 041
     Dates: start: 20230731
  2. LENVATINIB MESYLATE [Suspect]
     Active Substance: LENVATINIB MESYLATE
     Indication: Renal cell carcinoma stage IV
     Dosage: 12 MILLIGRAM
     Route: 048
     Dates: start: 20230731, end: 202308
  3. LENVATINIB MESYLATE [Suspect]
     Active Substance: LENVATINIB MESYLATE
     Dosage: 4 MILLIGRAM
     Route: 048
     Dates: start: 202308, end: 20230828
  4. LENVATINIB MESYLATE [Suspect]
     Active Substance: LENVATINIB MESYLATE
     Dosage: 4 MILLIGRAM, 5 X PER WEEK (5 DAYS ON/2 DAYS OFF)
     Route: 048
     Dates: start: 202309, end: 20231126

REACTIONS (7)
  - Hypothyroidism [Recovering/Resolving]
  - Fatigue [Recovered/Resolved]
  - Cardiac dysfunction [Recovered/Resolved]
  - Cardiac failure acute [Recovered/Resolved]
  - Malaise [Recovering/Resolving]
  - Dysphonia [Recovering/Resolving]
  - Palpitations [Recovering/Resolving]

NARRATIVE: CASE EVENT DATE: 20230101
